FAERS Safety Report 24769678 (Version 1)
Quarter: 2024Q4

REPORT INFORMATION
  Report Type: Spontaneous
  Country: US (occurrence: US)
  Receive Date: 20241224
  Receipt Date: 20241224
  Transmission Date: 20250115
  Serious: Yes (Other)
  Sender: APOTEX
  Company Number: US-APOTEX-2024AP019799

PATIENT
  Age: 62 Year

DRUGS (13)
  1. DASATINIB [Suspect]
     Active Substance: DASATINIB
     Indication: Chronic myeloid leukaemia
     Dosage: 100 MILLIGRAM
     Route: 048
  2. DASATINIB [Suspect]
     Active Substance: DASATINIB
     Indication: Philadelphia chromosome positive
  3. PONATINIB [Suspect]
     Active Substance: PONATINIB
     Indication: Chronic myeloid leukaemia
     Dosage: 15 MILLIGRAM
     Route: 065
  4. PONATINIB [Suspect]
     Active Substance: PONATINIB
     Indication: Philadelphia chromosome positive
     Dosage: 30 MILLIGRAM
     Route: 065
  5. IMATINIB [Suspect]
     Active Substance: IMATINIB
     Indication: Chronic myeloid leukaemia
     Dosage: 400 MILLIGRAM, QD
     Route: 048
  6. IMATINIB [Suspect]
     Active Substance: IMATINIB
     Indication: Philadelphia chromosome positive
     Dosage: 300 MILLIGRAM, QD
     Route: 048
  7. NILOTINIB [Suspect]
     Active Substance: NILOTINIB
     Indication: Chronic myeloid leukaemia
     Dosage: 300 MILLIGRAM, BID
     Route: 048
  8. NILOTINIB [Suspect]
     Active Substance: NILOTINIB
     Indication: Philadelphia chromosome positive
     Dosage: 300 MILLIGRAM, QD
     Route: 048
  9. BOSUTINIB [Suspect]
     Active Substance: BOSUTINIB
     Indication: Chronic myeloid leukaemia
     Dosage: 100 MILLIGRAM
     Route: 065
     Dates: start: 201708
  10. BOSUTINIB [Suspect]
     Active Substance: BOSUTINIB
     Indication: Philadelphia chromosome positive
     Dosage: 200 MILLIGRAM
     Route: 065
  11. BOSUTINIB [Suspect]
     Active Substance: BOSUTINIB
     Dosage: 400 MILLIGRAM
     Route: 065
  12. ASCIMINIB [Suspect]
     Active Substance: ASCIMINIB
     Indication: Chronic myeloid leukaemia
     Dosage: 80 MILLIGRAM, QD
     Route: 048
  13. ASCIMINIB [Suspect]
     Active Substance: ASCIMINIB
     Indication: Philadelphia chromosome positive

REACTIONS (3)
  - Liver function test increased [Unknown]
  - Diarrhoea [Unknown]
  - Hypertension [Recovering/Resolving]
